APPROVED DRUG PRODUCT: LAMIVUDINE
Active Ingredient: LAMIVUDINE
Strength: 100MG
Dosage Form/Route: TABLET;ORAL
Application: A203260 | Product #001 | TE Code: AB
Applicant: HETERO LABS LTD UNIT V
Approved: Jan 2, 2014 | RLD: No | RS: No | Type: RX